FAERS Safety Report 22098363 (Version 1)
Quarter: 2023Q1

REPORT INFORMATION
  Report Type: Other
  Country: None (occurrence: US)
  Receive Date: 20230315
  Receipt Date: 20230315
  Transmission Date: 20230418
  Serious: Yes (Hospitalization)
  Sender: FDA-Public Use
  Company Number: US-Vi-Jon Inc.-2139100

PATIENT
  Sex: Female

DRUGS (1)
  1. MAGNESIUM CITRATE CHERRY [Suspect]
     Active Substance: MAGNESIUM CITRATE
     Route: 048
     Dates: start: 20220807, end: 20220809

REACTIONS (1)
  - Vomiting [Unknown]

NARRATIVE: CASE EVENT DATE: 20220807
